FAERS Safety Report 6236680-8 (Version None)
Quarter: 2009Q2

REPORT INFORMATION
  Report Type: 
  Country: None (occurrence: None)
  Receive Date: 20090619
  Receipt Date: 20090210
  Transmission Date: 20091009
  Serious: No
  Sender: FDA-Public Use
  Company Number: US-ASTRAZENECA-2009UW03911

PATIENT
  Age: 56 Year
  Sex: Male
  Weight: 101.6 kg

DRUGS (1)
  1. ATACAND [Suspect]
     Indication: HYPERTENSION
     Route: 048

REACTIONS (2)
  - DRUG INEFFECTIVE [None]
  - HYPERTENSION [None]
